FAERS Safety Report 10782733 (Version 3)
Quarter: 2015Q1

REPORT INFORMATION
  Report Type: Spontaneous
  Country: JP (occurrence: JP)
  Receive Date: 20150210
  Receipt Date: 20150326
  Transmission Date: 20150721
  Serious: Yes (Death, Life-Threatening, Hospitalization)
  Sender: FDA-Public Use
  Company Number: JP-PFIZER INC-2015035820

PATIENT
  Age: 17 Year
  Sex: Male
  Weight: 46.5 kg

DRUGS (31)
  1. BOSULIF [Suspect]
     Active Substance: BOSUTINIB MONOHYDRATE
     Indication: CHRONIC MYELOID LEUKAEMIA
     Dosage: 200 MG, DAILY
     Route: 048
     Dates: start: 20150120, end: 20150121
  2. BESOFTEN [Concomitant]
     Active Substance: SODIUM ALGINATE
     Indication: DRY SKIN
     Dosage: UNK
     Dates: start: 201409, end: 20150224
  3. HANP [Concomitant]
     Active Substance: CARPERITIDE
     Indication: CARDIAC FAILURE CONGESTIVE
     Dosage: 1000 ?G, 2X/DAY
     Dates: start: 20150128, end: 20150210
  4. FOSCAVIR [Concomitant]
     Active Substance: FOSCARNET SODIUM
     Indication: CYTOMEGALOVIRUS INFECTION
     Dosage: 24 MG, 2X/DAY
     Dates: start: 20150128, end: 20150205
  5. SOLDEM 3A [Concomitant]
     Active Substance: CARBOHYDRATES\POTASSIUM CHLORIDE\SODIUM CHLORIDE\SODIUM LACTATE
     Dosage: 500 ML, 1X/DAY
     Dates: start: 20150123, end: 20150131
  6. URSO [Concomitant]
     Active Substance: URSODIOL
     Dosage: 100 MG, 3X/DAY
     Dates: start: 20141029, end: 20150202
  7. SLOW-K [Concomitant]
     Active Substance: POTASSIUM CHLORIDE
     Indication: HYPOKALAEMIA
     Dosage: 600 MG, 2X/DAY
     Dates: start: 20150124, end: 20150203
  8. ZOVIRAX [Concomitant]
     Active Substance: ACYCLOVIR
     Dosage: 200 MG, 3X/DAY
     Dates: start: 20141029, end: 20150202
  9. BAKTAR [Concomitant]
     Active Substance: SULFAMETHOXAZOLE\TRIMETHOPRIM
     Dosage: 1 DF, 1X/DAY
     Dates: start: 20150119, end: 20150203
  10. GLUCOSE [Concomitant]
     Active Substance: DEXTROSE
     Dosage: 250 ML, ONCE A DAY
     Dates: start: 20150119, end: 20150203
  11. DISTILLED WATER [Concomitant]
     Dosage: 20 ML, 2X/DAY
     Dates: start: 20150128, end: 20150204
  12. FINIBAX [Concomitant]
     Active Substance: DORIPENEM MONOHYDRATE
     Indication: FEBRILE NEUTROPENIA
     Dosage: 0.5 G, 3X/DAY
     Dates: start: 20150128, end: 20150212
  13. HEPARIN SODIUM. [Concomitant]
     Active Substance: HEPARIN SODIUM
     Dosage: 10 UNK, UNK
     Dates: end: 20150223
  14. SENNOSIDES. [Concomitant]
     Active Substance: SENNOSIDES
     Indication: CONSTIPATION
     Dosage: UNK, 1X/DAY
     Dates: start: 20150119, end: 20150128
  15. LASIX [Concomitant]
     Active Substance: FUROSEMIDE
     Indication: OEDEMA
     Dosage: 20 MG, 1X/DAY
     Dates: start: 20141028, end: 20150219
  16. DISTILLED WATER [Concomitant]
     Dosage: 20 ML, 1X/DAY
     Dates: start: 20150119, end: 20150203
  17. BOSULIF [Suspect]
     Active Substance: BOSUTINIB MONOHYDRATE
     Dosage: 500 MG, DAILY
     Route: 048
     Dates: start: 20150122, end: 20150128
  18. GLUCOSE [Concomitant]
     Active Substance: DEXTROSE
     Dosage: 20 ML, 1X/DAY
     Dates: start: 20150119, end: 20150220
  19. SOLDACTONE [Concomitant]
     Active Substance: CANRENOATE POTASSIUM
     Indication: OEDEMA
     Dosage: 200 MG, 1X/DAY
     Dates: start: 20150115, end: 20150202
  20. SODIUM PHOSPHATE [Concomitant]
     Active Substance: SODIUM PHOSPHATE
     Indication: HYPOKALAEMIA
     Dosage: 20 ML, 1X/DAY
     Dates: start: 20150123, end: 20150131
  21. LOPERAMIDE [Concomitant]
     Active Substance: LOPERAMIDE
     Indication: PROPHYLAXIS AGAINST DIARRHOEA
     Dosage: 1 MG, 1X/DAY
     Dates: start: 20150126, end: 20150129
  22. SOLU-MEDROL [Concomitant]
     Active Substance: METHYLPREDNISOLONE SODIUM SUCCINATE
     Indication: PULMONARY ALVEOLAR HAEMORRHAGE
     Dosage: UNK, 1X/DAY
     Dates: start: 20150128, end: 20150130
  23. PREDONINE [Concomitant]
     Active Substance: PREDNISOLONE\PREDNISOLONE ACETATE\PREDNISOLONE SODIUM SUCCINATE
     Indication: CHRONIC MYELOID LEUKAEMIA
     Dosage: 20 MG, 1X/DAY
     Dates: start: 20141222, end: 20150224
  24. AMBISOME [Concomitant]
     Active Substance: AMPHOTERICIN B
     Indication: FUNGAL INFECTION
     Dosage: 50 MG, 1X/DAY
     Dates: start: 20150119, end: 20150203
  25. BUSCOPAN [Concomitant]
     Active Substance: BUTYLSCOPOLAMINE BROMIDE
     Indication: ABDOMINAL PAIN
     Dosage: 20 MG, 1X/DAY
     Dates: start: 20150110, end: 20150130
  26. ZOSYN [Concomitant]
     Active Substance: PIPERACILLIN SODIUM\TAZOBACTAM SODIUM
     Indication: FEBRILE NEUTROPENIA
     Dosage: 4.5 G, 4X/DAY
     Dates: start: 20150110, end: 20150128
  27. SODIUM CHLORIDE. [Concomitant]
     Active Substance: SODIUM CHLORIDE
     Dosage: 20 ML, 1X/DAY
     Dates: end: 20150128
  28. POTASSIUM CHLORIDE. [Concomitant]
     Active Substance: POTASSIUM CHLORIDE
     Indication: HYPOKALAEMIA
     Dosage: 20 ML, 1X/DAY
     Dates: start: 20150120, end: 20150220
  29. BIOFERMIN R [Concomitant]
     Active Substance: BACILLUS SUBTILIS\LACTOBACILLUS ACIDOPHILUS\STREPTOCOCCUS FAECAIS
     Indication: DIARRHOEA
     Dosage: UNK, 3X/DAY
     Dates: start: 20140808, end: 20150202
  30. LEPETAN [Concomitant]
     Active Substance: BUPRENORPHINE HYDROCHLORIDE
     Indication: ABDOMINAL PAIN
     Dosage: 0.2 MG, 1X/DAY
     Dates: start: 20150110, end: 20150129
  31. ACELIO [Concomitant]
     Active Substance: ACETAMINOPHEN
     Indication: PYREXIA
     Dosage: UNK
     Route: 042
     Dates: start: 20150115, end: 20150213

REACTIONS (4)
  - Disease progression [Fatal]
  - Diarrhoea [Not Recovered/Not Resolved]
  - Chronic myeloid leukaemia [Fatal]
  - Pulmonary alveolar haemorrhage [Not Recovered/Not Resolved]

NARRATIVE: CASE EVENT DATE: 20150126
